FAERS Safety Report 6807331-6 (Version None)
Quarter: 2010Q2

REPORT INFORMATION
  Report Type: 
  Country: None (occurrence: None)
  Receive Date: 20100629
  Receipt Date: 20080911
  Transmission Date: 20101027
  Serious: No
  Sender: FDA-Public Use
  Company Number: US-PFIZER INC-2008076615

PATIENT
  Sex: Female
  Weight: 65.9 kg

DRUGS (3)
  1. XANAX [Suspect]
     Indication: PANIC DISORDER
     Dates: start: 20060101
  2. LEXAPRO [Concomitant]
  3. ALL OTHER THERAPEUTIC PRODUCTS [Concomitant]

REACTIONS (5)
  - ABNORMAL BEHAVIOUR [None]
  - DEPRESSION [None]
  - LACK OF SPONTANEOUS SPEECH [None]
  - NIGHTMARE [None]
  - SCREAMING [None]
